FAERS Safety Report 23538464 (Version 2)
Quarter: 2024Q1

REPORT INFORMATION
  Report Type: Spontaneous
  Country: US (occurrence: US)
  Receive Date: 20240219
  Receipt Date: 20240220
  Transmission Date: 20240409
  Serious: No
  Sender: FDA-Public Use
  Company Number: US-PFIZER INC-PV202400020497

PATIENT
  Age: 40 Year
  Sex: Female

DRUGS (2)
  1. BESPONSA [Suspect]
     Active Substance: INOTUZUMAB OZOGAMICIN
     Dosage: INF 1.44MG X1 THEN 0.9 EVERY 21 DAYS
  2. BESPONSA [Suspect]
     Active Substance: INOTUZUMAB OZOGAMICIN
     Dosage: 0.9 MG

REACTIONS (1)
  - Off label use [Unknown]
